FAERS Safety Report 4549598-3 (Version None)
Quarter: 2005Q1

REPORT INFORMATION
  Report Type: 
  Country: None (occurrence: None)
  Receive Date: 20050111
  Receipt Date: 20050104
  Transmission Date: 20050727
  Serious: Yes (Hospitalization)
  Sender: FDA-Public Use
  Company Number: US-JNJFOC-20050101381

PATIENT
  Sex: Female
  Weight: 70.31 kg

DRUGS (2)
  1. DURAGESIC [Suspect]
     Route: 062
     Dates: start: 20030101
  2. ACTIQ [Concomitant]
     Route: 050

REACTIONS (2)
  - APPLICATION SITE PRURITUS [None]
  - SYSTEMIC MYCOSIS [None]
